FAERS Safety Report 7439432-6 (Version None)
Quarter: 2011Q2

REPORT INFORMATION
  Report Type: 
  Country: None (occurrence: None)
  Receive Date: 20110427
  Receipt Date: 20110412
  Transmission Date: 20111010
  Serious: Yes (Other)
  Sender: FDA-Public Use
  Company Number: FR-JNJFOC-20110406469

PATIENT
  Age: 16 Year
  Sex: Male

DRUGS (3)
  1. INFLIXIMAB [Suspect]
     Indication: COLITIS ULCERATIVE
     Route: 042
  2. CORTICOSTEROIDS [Concomitant]
     Indication: COLITIS ULCERATIVE
  3. CYCLOSPORINE [Suspect]
     Indication: COLITIS ULCERATIVE

REACTIONS (1)
  - DEVICE RELATED INFECTION [None]
